FAERS Safety Report 4388107-9 (Version None)
Quarter: 2004Q2

REPORT INFORMATION
  Report Type: 
  Country: None (occurrence: None)
  Receive Date: 20040630
  Receipt Date: 20040630
  Transmission Date: 20050107
  Serious: No
  Sender: FDA-Public Use
  Company Number: None

PATIENT
  Sex: Male
  Weight: 74.8435 kg

DRUGS (1)
  1. NASONEX [Suspect]
     Indication: MULTIPLE ALLERGIES
     Dosage: 2 SQUIRT DAY/TRI NOS NASAL
     Route: 045
     Dates: start: 20031201, end: 20040131

REACTIONS (2)
  - BLOOD GLUCOSE ABNORMAL [None]
  - PHARMACEUTICAL PRODUCT COMPLAINT [None]
